FAERS Safety Report 4953041-X (Version None)
Quarter: 2006Q1

REPORT INFORMATION
  Report Type: 
  Country: None (occurrence: None)
  Receive Date: 20060320
  Receipt Date: 20060307
  Transmission Date: 20060701
  Serious: Yes (Other)
  Sender: FDA-Public Use
  Company Number: 2006033555

PATIENT
  Age: 78 Year
  Sex: Female
  Weight: 67.1324 kg

DRUGS (1)
  1. LYRICA [Suspect]
     Indication: HERPES ZOSTER
     Dosage: 50 MG (50 MG, 1 IN 1 D),
     Dates: start: 20060302, end: 20060304

REACTIONS (10)
  - ANOREXIA [None]
  - ASTHENIA [None]
  - BACK DISORDER [None]
  - DRUG INEFFECTIVE [None]
  - DYSGEUSIA [None]
  - HYPOAESTHESIA [None]
  - IRRITABLE BOWEL SYNDROME [None]
  - PARALYSIS [None]
  - TREATMENT NONCOMPLIANCE [None]
  - WEIGHT DECREASED [None]
